FAERS Safety Report 5610455-2 (Version None)
Quarter: 2008Q1

REPORT INFORMATION
  Report Type: 
  Country: None (occurrence: None)
  Receive Date: 20080128
  Receipt Date: 20080121
  Transmission Date: 20080703
  Serious: Yes (Hospitalization)
  Sender: FDA-Public Use
  Company Number: AZAUS200800027

PATIENT
  Age: 65 Year
  Sex: Male
  Weight: 80.2 kg

DRUGS (5)
  1. VIDAZA [Suspect]
     Indication: MYELOPROLIFERATIVE DISORDER
     Dosage: 75 MG/M2, DAILY, INTRAVENOUS
     Route: 042
     Dates: start: 20080114, end: 20080117
  2. PROCHLORPERAZINE MALEATE [Concomitant]
  3. DOCUSATE SODIUM (DOCUSATE SODIUM) [Concomitant]
  4. SENNA (SENNOSIDE A+B) [Suspect]
  5. FIBERCON (POLYCARBOPHIL CALCIUM) [Concomitant]

REACTIONS (5)
  - ABDOMINAL PAIN [None]
  - NECROSIS [None]
  - RASH [None]
  - REFUSAL OF TREATMENT BY PATIENT [None]
  - SPLENIC INFARCTION [None]
